FAERS Safety Report 12698670 (Version 3)
Quarter: 2017Q1

REPORT INFORMATION
  Report Type: Spontaneous
  Country: US (occurrence: US)
  Receive Date: 20160830
  Receipt Date: 20170305
  Transmission Date: 20170428
  Serious: No
  Sender: FDA-Public Use
  Company Number: US-ASTRAZENECA-2016SE88652

PATIENT
  Age: 54 Year
  Sex: Female
  Weight: 52.2 kg

DRUGS (2)
  1. PULMICORT FLEXHALER [Suspect]
     Active Substance: BUDESONIDE
     Indication: ASTHMA
     Dosage: 180 MCG, SPRAYING INHALER
     Route: 055
  2. PULMICORT FLEXHALER [Suspect]
     Active Substance: BUDESONIDE
     Indication: ASTHMA
     Dosage: ONE INHALATION TWICE DAILY
     Route: 055
     Dates: start: 2016, end: 2016

REACTIONS (9)
  - Dyspnoea [Recovered/Resolved]
  - Intentional product use issue [Unknown]
  - Bladder dysfunction [Unknown]
  - Sinus headache [Not Recovered/Not Resolved]
  - Bladder injury [Unknown]
  - Product physical issue [Recovered/Resolved]
  - Lung infection [Unknown]
  - Product quality issue [Unknown]
  - Chest discomfort [Recovered/Resolved]

NARRATIVE: CASE EVENT DATE: 2016
